FAERS Safety Report 9733317 (Version 1)
Quarter: 2013Q4

REPORT INFORMATION
  Report Type: Spontaneous
  Country: US (occurrence: US)
  Receive Date: 20131204
  Receipt Date: 20131204
  Transmission Date: 20140711
  Serious: No
  Sender: FDA-Public Use
  Company Number: US-ENDO PHARMACEUTICALS INC.-APIR20120013

PATIENT
  Age: 57 Year
  Sex: Female

DRUGS (1)
  1. ALPRAZOLAM IR TABLETS 1MG [Suspect]
     Indication: ANXIETY
     Dosage: 1 MG
     Route: 048
     Dates: start: 20120806

REACTIONS (1)
  - Drug ineffective [Unknown]
